FAERS Safety Report 18114168 (Version 2)
Quarter: 2020Q4

REPORT INFORMATION
  Report Type: Spontaneous
  Country: CA (occurrence: CA)
  Receive Date: 20200805
  Receipt Date: 20201005
  Transmission Date: 20210113
  Serious: Yes (Death, Hospitalization)
  Sender: FDA-Public Use
  Company Number: CA-ABBVIE-20K-028-3511728-00

PATIENT
  Age: 85 Year
  Sex: Male

DRUGS (1)
  1. VENETOCLAX. [Suspect]
     Active Substance: VENETOCLAX
     Indication: ACUTE MYELOID LEUKAEMIA
     Route: 048
     Dates: start: 202001, end: 202002

REACTIONS (9)
  - Illness [Fatal]
  - Off label use [Unknown]
  - Renal failure [Unknown]
  - Pleural effusion [Unknown]
  - Chills [Not Recovered/Not Resolved]
  - Speech disorder [Unknown]
  - Hepatic failure [Unknown]
  - Oxygen saturation decreased [Unknown]
  - Pyrexia [Not Recovered/Not Resolved]

NARRATIVE: CASE EVENT DATE: 2020
